FAERS Safety Report 10378008 (Version 1)
Quarter: 2014Q1

REPORT INFORMATION
  Report Type: Spontaneous
  Country: US (occurrence: None)
  Receive Date: 20140306
  Receipt Date: 20140306
  Transmission Date: 20141002
  Serious: Yes (Other)
  Sender: FDA-Public Use
  Company Number: 163-21880-13031937

PATIENT
  Age: 86 Year
  Sex: Female
  Weight: 58 kg

DRUGS (4)
  1. REVLIMID (LENALIDOMIDE) (5 MILLIGRAM, CAPSULES) [Suspect]
     Indication: MYELODYSPLASTIC SYNDROME
     Dosage: 1 IN 1 D
     Route: 048
     Dates: start: 201201
  2. FOLIC ACID [Concomitant]
  3. METOPROLOL [Concomitant]
  4. CALCIUM WITH VITAMIN D [Concomitant]

REACTIONS (1)
  - Thrombocytopenia [None]
